FAERS Safety Report 14015216 (Version 1)
Quarter: 2017Q3

REPORT INFORMATION
  Report Type: Spontaneous
  Country: GB (occurrence: GB)
  Receive Date: 20170927
  Receipt Date: 20170927
  Transmission Date: 20171128
  Serious: Yes (Disabling, Other)
  Sender: FDA-Public Use
  Company Number: GB-TEVA-808368ACC

PATIENT
  Age: 42 Year
  Sex: Male
  Weight: 67 kg

DRUGS (2)
  1. CITALOPRAM [Suspect]
     Active Substance: CITALOPRAM HYDROBROMIDE
     Indication: ANXIETY
     Route: 048
     Dates: start: 20160101, end: 20160601
  2. CITALOPRAM [Suspect]
     Active Substance: CITALOPRAM HYDROBROMIDE
     Indication: ANXIETY
     Route: 048
     Dates: end: 20151231

REACTIONS (3)
  - Insomnia [Not Recovered/Not Resolved]
  - Condition aggravated [Unknown]
  - Stress [Unknown]
